FAERS Safety Report 13834885 (Version 2)
Quarter: 2017Q3

REPORT INFORMATION
  Report Type: Report from Study
  Country: None (occurrence: AU)
  Receive Date: 20170804
  Receipt Date: 20170922
  Transmission Date: 20171127
  Serious: No
  Sender: FDA-Public Use
  Company Number: AU-ABBVIE-17K-008-2060128-00

PATIENT
  Sex: Female

DRUGS (1)
  1. HUMIRA [Suspect]
     Active Substance: ADALIMUMAB
     Indication: COLITIS ULCERATIVE
     Route: 058
     Dates: start: 20170214

REACTIONS (7)
  - Hypoaesthesia oral [Unknown]
  - Pain in extremity [Unknown]
  - Blood pressure increased [Recovering/Resolving]
  - Adverse drug reaction [Unknown]
  - Stress [Unknown]
  - Injection site pruritus [Unknown]
  - Heart rate increased [Unknown]
